FAERS Safety Report 5117416-0 (Version None)
Quarter: 2006Q3

REPORT INFORMATION
  Report Type: 
  Country: None (occurrence: None)
  Receive Date: 20060929
  Receipt Date: 20060919
  Transmission Date: 20061208
  Serious: Yes (Death)
  Sender: FDA-Public Use
  Company Number: US-JNJFOC-20060904890

PATIENT
  Sex: Male
  Weight: 94.8 kg

DRUGS (16)
  1. RISPERDAL [Suspect]
     Indication: DRUG USE FOR UNKNOWN INDICATION
     Route: 048
  2. NIASPAN [Interacting]
     Indication: BLOOD CHOLESTEROL INCREASED
     Route: 048
  3. NIASPAN [Interacting]
     Indication: HIGH DENSITY LIPOPROTEIN DECREASED
     Route: 048
  4. WELLBUTRIN [Suspect]
     Indication: DEPRESSION
     Route: 048
  5. EFFEXOR [Suspect]
     Indication: DEPRESSION
     Route: 048
  6. LORAZEPAM [Suspect]
     Indication: DEPRESSION
  7. TRAZODONE HCL [Suspect]
     Indication: DEPRESSION
     Route: 048
  8. TENORMIN [Suspect]
     Indication: TACHYARRHYTHMIA
     Route: 048
  9. LANOXIN [Suspect]
     Indication: TACHYARRHYTHMIA
     Route: 048
  10. GLUCOPHAGE [Suspect]
     Indication: DIABETES MELLITUS
  11. GLUCOTROL XL [Suspect]
     Indication: DIABETES MELLITUS
     Route: 048
  12. ACTOS [Suspect]
     Indication: DIABETES MELLITUS
     Route: 048
  13. TRICOR [Suspect]
     Indication: DYSLIPIDAEMIA
     Route: 048
  14. LANTUS [Suspect]
     Indication: DIABETES MELLITUS
     Route: 058
  15. LIPITOR [Suspect]
     Indication: DRUG USE FOR UNKNOWN INDICATION
  16. MULTIVITAMIN [Suspect]
     Indication: DRUG USE FOR UNKNOWN INDICATION

REACTIONS (2)
  - DRUG INTERACTION [None]
  - MYOCARDIAL INFARCTION [None]
